FAERS Safety Report 4597064-1 (Version None)
Quarter: 2005Q1

REPORT INFORMATION
  Report Type: 
  Country: None (occurrence: None)
  Receive Date: 20050301
  Receipt Date: 20050107
  Transmission Date: 20050727
  Serious: Yes (Disabling)
  Sender: FDA-Public Use
  Company Number: A02200500050

PATIENT
  Age: 61 Year
  Sex: Male

DRUGS (7)
  1. PLAVIX [Suspect]
     Indication: ACUTE CORONARY SYNDROME
     Dosage: 75 MG QD ORAL
     Route: 048
     Dates: start: 20041114, end: 20050110
  2. PLAVIX [Suspect]
     Indication: STENT PLACEMENT
     Dosage: 75 MG QD ORAL
     Route: 048
     Dates: start: 20041114, end: 20050110
  3. LODALES - (SIMVASTATIN) - TABLET - 40 MG [Suspect]
     Indication: DYSLIPIDAEMIA
     Dosage: 40 MG OD ORAL
     Route: 048
     Dates: start: 20041016, end: 20050102
  4. KARDEGIC (ACETYLSALICYLATE LYSINE) [Concomitant]
  5. RAMIPRIL [Concomitant]
  6. CEFUROXIME AXETIL [Concomitant]
  7. OMEPRAZOLE [Concomitant]

REACTIONS (3)
  - COMPARTMENT SYNDROME [None]
  - HEPATITIS [None]
  - RHABDOMYOLYSIS [None]
